FAERS Safety Report 23208012 (Version 1)
Quarter: 2023Q4

REPORT INFORMATION
  Report Type: Spontaneous
  Country: US (occurrence: US)
  Receive Date: 20231121
  Receipt Date: 20231121
  Transmission Date: 20240110
  Serious: No
  Sender: FDA-Public Use
  Company Number: US-HETERO-HET2023US03233

PATIENT
  Sex: Male

DRUGS (1)
  1. FAMCICLOVIR [Suspect]
     Active Substance: FAMCICLOVIR
     Indication: Product used for unknown indication
     Dosage: 250 MILLIGRAM
     Route: 065

REACTIONS (4)
  - Flushing [Unknown]
  - Presyncope [Unknown]
  - Body temperature increased [Unknown]
  - Dizziness [Unknown]
